FAERS Safety Report 20012844 (Version 1)
Quarter: 2021Q4

REPORT INFORMATION
  Report Type: Report from Study
  Country: CA (occurrence: CA)
  Receive Date: 20211029
  Receipt Date: 20211029
  Transmission Date: 20220303
  Serious: Yes (Other)
  Sender: FDA-Public Use
  Company Number: CA-JNJFOC-20211040027

PATIENT
  Age: 47 Year
  Sex: Female
  Weight: 69 kg

DRUGS (1)
  1. SIMPONI [Suspect]
     Active Substance: GOLIMUMAB
     Indication: Ankylosing spondylitis
     Route: 058
     Dates: start: 20210730

REACTIONS (4)
  - Constipation [Not Recovered/Not Resolved]
  - Ovarian hyperstimulation syndrome [Unknown]
  - Urinary tract infection [Unknown]
  - Toothache [Unknown]

NARRATIVE: CASE EVENT DATE: 20211009
